FAERS Safety Report 4291395-0 (Version None)
Quarter: 2004Q1

REPORT INFORMATION
  Report Type: 
  Country: None (occurrence: None)
  Receive Date: 20040211
  Receipt Date: 20030313
  Transmission Date: 20041129
  Serious: No
  Sender: FDA-Public Use
  Company Number: US-BRISTOL-MYERS SQUIBB COMPANY-12211934

PATIENT
  Sex: Female

DRUGS (1)
  1. BRISORAL [Suspect]
     Route: 048
     Dates: start: 20030228, end: 20030309

REACTIONS (1)
  - URTICARIA [None]
